FAERS Safety Report 11864907 (Version 3)
Quarter: 2016Q1

REPORT INFORMATION
  Report Type: Spontaneous
  Country: US (occurrence: US)
  Receive Date: 20151223
  Receipt Date: 20160211
  Transmission Date: 20160526
  Serious: No
  Sender: FDA-Public Use
  Company Number: US-GLAXOSMITHKLINE-US2015GSK178105

PATIENT
  Age: 66 Year
  Sex: Female
  Weight: 73 kg

DRUGS (1)
  1. PROPAFENONE. [Suspect]
     Active Substance: PROPAFENONE
     Indication: VENTRICULAR EXTRASYSTOLES
     Dosage: 150 MG, BID
     Route: 048
     Dates: end: 20131119

REACTIONS (6)
  - Nerve conduction studies abnormal [Recovering/Resolving]
  - Hypoaesthesia [Recovering/Resolving]
  - Neuropathy peripheral [Recovering/Resolving]
  - Toxicity to various agents [Unknown]
  - Pain in extremity [Recovering/Resolving]
  - Neuralgia [Recovering/Resolving]

NARRATIVE: CASE EVENT DATE: 201305
